FAERS Safety Report 5428420-7 (Version None)
Quarter: 2007Q3

REPORT INFORMATION
  Report Type: 
  Country: None (occurrence: None)
  Receive Date: 20070823
  Receipt Date: 20070810
  Transmission Date: 20080115
  Serious: Yes (Hospitalization)
  Sender: FDA-Public Use
  Company Number: 2007US001766

PATIENT
  Age: 59 Year
  Sex: Female

DRUGS (13)
  1. PROGRAF [Suspect]
     Indication: KIDNEY TRANSPLANT REJECTION
     Dosage: 2 MG, BID; ORAL
     Route: 048
  2. MYCOPHENOLATE MOFETIL [Suspect]
     Indication: KIDNEY TRANSPLANT REJECTION
     Dosage: 1000 MG, BID; ORAL
     Route: 048
     Dates: start: 20050519
  3. PREDNISONE TAB [Suspect]
     Indication: KIDNEY TRANSPLANT REJECTION
     Dosage: 5 MG, UID/QD; ORAL
     Route: 048
  4. TOPROL-XL [Concomitant]
  5. DIOVAN [Concomitant]
  6. PRILOSEC [Concomitant]
  7. MULTIVITAMIN [Concomitant]
  8. TRICOR [Concomitant]
  9. INSULIN (INSULIN HUMAN) [Concomitant]
  10. LIPITOR [Concomitant]
  11. BACTRIM (TRIMETHOPRIM) [Concomitant]
  12. ACYCLOVIR [Concomitant]
  13. METOPROLOL TARTRATE [Concomitant]

REACTIONS (6)
  - CARDIOMEGALY [None]
  - ESCHERICHIA URINARY TRACT INFECTION [None]
  - HYDRONEPHROSIS [None]
  - PERINEPHRIC COLLECTION [None]
  - PULMONARY HYPERTENSION [None]
  - PYELONEPHRITIS [None]
